FAERS Safety Report 4582734-1 (Version None)
Quarter: 2005Q1

REPORT INFORMATION
  Report Type: 
  Country: None (occurrence: None)
  Receive Date: 20050125
  Receipt Date: 20040809
  Transmission Date: 20050727
  Serious: Yes (Other)
  Sender: FDA-Public Use
  Company Number: PHEH2004US08654

PATIENT
  Sex: 0

DRUGS (1)
  1. SANDOSTATIN LAR [Suspect]
     Indication: CARCINOID SYNDROME
     Dates: start: 20030101

REACTIONS (3)
  - ANTI-GAD ANTIBODY POSITIVE [None]
  - DIABETES MELLITUS INSULIN-DEPENDENT [None]
  - THERAPEUTIC RESPONSE UNEXPECTED [None]
